FAERS Safety Report 4346471-0 (Version None)
Quarter: 2004Q2

REPORT INFORMATION
  Report Type: 
  Country: None (occurrence: None)
  Receive Date: 20040426
  Receipt Date: 20030521
  Transmission Date: 20050107
  Serious: Yes (Other)
  Sender: FDA-Public Use
  Company Number: US-BRISTOL-MYERS SQUIBB COMPANY-12282794

PATIENT
  Age: 64 Year
  Sex: Female

DRUGS (6)
  1. CARBOPLATIN [Suspect]
     Indication: OVARIAN CANCER
     Dosage: THERAPY VIA PORT STOPPED AFTER 10 MIN
     Route: 042
     Dates: start: 20030523, end: 20030523
  2. TAXOL [Concomitant]
     Indication: OVARIAN CANCER
     Dates: start: 20030523, end: 20030523
  3. ANZEMET [Concomitant]
     Indication: PREMEDICATION
     Dates: start: 20030523, end: 20030523
  4. BENADRYL [Concomitant]
     Indication: PREMEDICATION
     Dates: start: 20030523, end: 20030523
  5. TAGAMET [Concomitant]
     Indication: PREMEDICATION
     Dates: start: 20030523, end: 20030523
  6. SOLU-MEDROL [Concomitant]
     Indication: PREMEDICATION
     Dates: start: 20030523, end: 20030523

REACTIONS (3)
  - DYSPNOEA [None]
  - FLUSHING [None]
  - HYPERSENSITIVITY [None]
